FAERS Safety Report 8491897-7 (Version None)
Quarter: 2012Q3

REPORT INFORMATION
  Report Type: 
  Country: None (occurrence: None)
  Receive Date: 20120706
  Receipt Date: 20111116
  Transmission Date: 20120928
  Serious: No
  Sender: FDA-Public Use
  Company Number: US-GLAXOSMITHKLINE-A0953423A

PATIENT
  Sex: Female

DRUGS (10)
  1. AMOXICILLIN [Suspect]
  2. ASPIRIN [Concomitant]
  3. IMDUR [Concomitant]
  4. CRESTOR [Concomitant]
  5. TENORMIN [Concomitant]
  6. OXYGEN [Concomitant]
  7. COMBIVENT [Concomitant]
  8. NORVASC [Concomitant]
  9. NEXIUM [Concomitant]
  10. FLOVENT [Suspect]
     Indication: LUNG DISORDER
     Dosage: 2PUFF TWICE PER DAY
     Route: 055
     Dates: start: 20110901

REACTIONS (3)
  - OROPHARYNGEAL PAIN [None]
  - CANDIDIASIS [None]
  - DYSGEUSIA [None]
